FAERS Safety Report 4405203-8 (Version None)
Quarter: 2004Q3

REPORT INFORMATION
  Report Type: 
  Country: None (occurrence: None)
  Receive Date: 20040721
  Receipt Date: 20040721
  Transmission Date: 20050211
  Serious: Yes (Other)
  Sender: FDA-Public Use
  Company Number: None

PATIENT
  Age: 43 Year
  Sex: Female
  Weight: 50 kg

DRUGS (1)
  1. NIMBEX [Suspect]
     Indication: NEUROMUSCULAR BLOCKADE
     Dosage: 25 MG IV ONCE
     Route: 042
     Dates: start: 20040625

REACTIONS (1)
  - MEDICATION ERROR [None]
